FAERS Safety Report 24540190 (Version 3)
Quarter: 2025Q3

REPORT INFORMATION
  Report Type: Report from Study
  Country: US (occurrence: US)
  Receive Date: 20241023
  Receipt Date: 20250803
  Transmission Date: 20251021
  Serious: Yes (Other)
  Sender: ALEXION PHARMACEUTICALS
  Company Number: US-AstraZeneca-CH-00718191AP

PATIENT
  Sex: Male

DRUGS (1)
  1. ACALABRUTINIB [Suspect]
     Active Substance: ACALABRUTINIB

REACTIONS (6)
  - Leukaemia [Unknown]
  - Urinary tract infection [Unknown]
  - Influenza [Unknown]
  - Renal disorder [Unknown]
  - Infection [Unknown]
  - Product physical issue [Unknown]
